FAERS Safety Report 9950846 (Version 2)
Quarter: 2014Q1

REPORT INFORMATION
  Report Type: Report from Study
  Country: PR (occurrence: PR)
  Receive Date: 20140304
  Receipt Date: 20140304
  Transmission Date: 20141002
  Serious: Yes (Hospitalization)
  Sender: FDA-Public Use
  Company Number: PR-ABBVIE-12P-131-0889585-00

PATIENT
  Age: 67 Year
  Sex: Female
  Weight: 97.16 kg

DRUGS (9)
  1. HUMIRA [Suspect]
     Indication: RHEUMATOID ARTHRITIS
     Route: 058
     Dates: start: 20111224
  2. HUMIRA [Suspect]
     Route: 058
     Dates: start: 20120128
  3. PREDNISONA [Concomitant]
     Indication: RHEUMATOID ARTHRITIS
     Route: 048
  4. METHOTREXATE [Concomitant]
     Indication: RHEUMATOID ARTHRITIS
     Dosage: 8 TAB ONE DAY OF WEEK
     Route: 048
  5. SULINDAC [Concomitant]
     Indication: PERNICIOUS ANAEMIA
     Route: 048
  6. TRAMADOL [Concomitant]
     Indication: PERNICIOUS ANAEMIA
     Route: 048
  7. ATENOLOL [Concomitant]
     Indication: HYPERTENSION
     Route: 048
  8. FOLIC ACID [Concomitant]
     Indication: PRODUCT USED FOR UNKNOWN INDICATION
     Route: 048
  9. ZANTAC [Concomitant]
     Indication: GASTRIC PH DECREASED
     Route: 048

REACTIONS (2)
  - Bronchitis [Recovered/Resolved]
  - Nasopharyngitis [Recovered/Resolved]
